FAERS Safety Report 8201493-4 (Version None)
Quarter: 2012Q1

REPORT INFORMATION
  Report Type: 
  Country: None (occurrence: None)
  Receive Date: 20120312
  Receipt Date: 20120305
  Transmission Date: 20120608
  Serious: Yes (Death, Hospitalization, Other)
  Sender: FDA-Public Use
  Company Number: US-TEVA-326404USA

PATIENT
  Age: 27 Year
  Sex: Female

DRUGS (10)
  1. SERTRALINE HYDROCHLORIDE [Suspect]
     Dosage: ONE DOSE OF 50MG
     Route: 065
  2. QUETIAPINE [Suspect]
     Dosage: 25MG
     Route: 065
  3. LORAZEPAM [Suspect]
     Indication: AGITATION
     Dosage: 2MG
     Route: 042
  4. HALOPERIDOL [Suspect]
     Indication: AGITATION
     Dosage: 5MG
     Route: 030
  5. SERTRALINE HYDROCHLORIDE [Suspect]
     Indication: DEPRESSION
     Route: 065
  6. LORAZEPAM [Suspect]
     Indication: CATATONIA
     Dosage: SINGLE DOSE OF 2MG
     Route: 030
  7. LORAZEPAM [Suspect]
     Dosage: 1MG
     Route: 065
  8. SERTRALINE HYDROCHLORIDE [Suspect]
     Dosage: 50MG DAILY
     Route: 065
  9. SERTRALINE HYDROCHLORIDE [Suspect]
     Dosage: 50MG
     Route: 065
  10. RISPERIDONE [Suspect]
     Dosage: 0.5MG AT BEDTIME
     Route: 065

REACTIONS (10)
  - HALLUCINATION, AUDITORY [None]
  - UNRESPONSIVE TO STIMULI [None]
  - CATATONIA [None]
  - CARDIO-RESPIRATORY ARREST [None]
  - DEPRESSION [None]
  - DYSPNOEA [None]
  - CHEST PAIN [None]
  - PARANOIA [None]
  - PULMONARY EMBOLISM [None]
  - HEART RATE INCREASED [None]
